FAERS Safety Report 7482122-4 (Version None)
Quarter: 2011Q2

REPORT INFORMATION
  Report Type: 
  Country: None (occurrence: None)
  Receive Date: 20110516
  Receipt Date: 20110512
  Transmission Date: 20111010
  Serious: No
  Sender: FDA-Public Use
  Company Number: US-PFIZER INC-2011102848

PATIENT
  Sex: Female
  Weight: 53.5 kg

DRUGS (3)
  1. PRISTIQ [Suspect]
     Indication: DEPRESSION
  2. SYNTHROID [Concomitant]
     Indication: THYROID CANCER
     Dosage: 112 MCG DAILY
     Dates: start: 20091201
  3. PRISTIQ [Suspect]
     Indication: ANXIETY
     Dosage: 50 MG DAILY
     Dates: start: 20110101

REACTIONS (4)
  - DECREASED APPETITE [None]
  - NAUSEA [None]
  - INSOMNIA [None]
  - WRONG TECHNIQUE IN DRUG USAGE PROCESS [None]
